FAERS Safety Report 7557609-6 (Version None)
Quarter: 2011Q2

REPORT INFORMATION
  Report Type: 
  Country: None (occurrence: None)
  Receive Date: 20110620
  Receipt Date: 20110606
  Transmission Date: 20111010
  Serious: Yes (Death, Hospitalization, Other)
  Sender: FDA-Public Use
  Company Number: US-JNJFOC-20100306660

PATIENT
  Sex: Male
  Weight: 90.72 kg

DRUGS (16)
  1. REMICADE [Suspect]
     Route: 042
     Dates: start: 20000712
  2. REMICADE [Suspect]
     Route: 042
     Dates: start: 20090416
  3. NIASPAN [Concomitant]
  4. FISH OIL [Concomitant]
  5. REMICADE [Suspect]
     Indication: CROHN'S DISEASE
     Route: 042
     Dates: start: 20090416
  6. CORGARD [Concomitant]
  7. OS.CAL [Concomitant]
  8. REMICADE [Suspect]
     Route: 042
     Dates: start: 20000712
  9. VITAMIN B-12 [Concomitant]
     Route: 058
  10. TRILIPIX [Concomitant]
  11. CALCIUM CARBONATE [Concomitant]
  12. REMICADE [Suspect]
     Dosage: INTERMITTENT, EPISODIC INFUSIONS,
     Route: 042
     Dates: end: 20100308
  13. REMICADE [Suspect]
     Dosage: INTERMITTENT, EPISODIC INFUSIONS,
     Route: 042
     Dates: end: 20100308
  14. MERCAPTOPURINE [Concomitant]
     Dates: start: 20041108, end: 20100301
  15. FOSAMAX [Concomitant]
  16. MULTI-VITAMINS [Concomitant]

REACTIONS (5)
  - HEPATOSPLENIC T-CELL LYMPHOMA [None]
  - DERMATITIS ALLERGIC [None]
  - IRON DEFICIENCY ANAEMIA [None]
  - INTESTINAL OBSTRUCTION [None]
  - SPLENIC RUPTURE [None]
